FAERS Safety Report 7734164-9 (Version None)
Quarter: 2011Q3

REPORT INFORMATION
  Report Type: 
  Country: None (occurrence: None)
  Receive Date: 20110907
  Receipt Date: 20110901
  Transmission Date: 20111222
  Serious: Yes (Death, Other)
  Sender: FDA-Public Use
  Company Number: RU-ABBOTT-11P-251-0839320-00

PATIENT
  Sex: Female
  Weight: 50 kg

DRUGS (4)
  1. PUREGON [Concomitant]
     Indication: PRODUCT USED FOR UNKNOWN INDICATION
     Dosage: 150-200
     Dates: start: 20110125, end: 20110206
  2. PREGNYL [Concomitant]
     Indication: PRODUCT USED FOR UNKNOWN INDICATION
     Dosage: 1 TIME
     Dates: start: 20110207, end: 20110207
  3. MENOPUR [Concomitant]
     Indication: PRODUCT USED FOR UNKNOWN INDICATION
     Dosage: 2 AMPOULES (150 IU)
     Dates: start: 20110129, end: 20110206
  4. LEUPROLIDE ACETATE [Suspect]
     Indication: ENDOMETRIOSIS
     Dates: start: 20101226, end: 20110116

REACTIONS (7)
  - EMBOLISM [None]
  - ISCHAEMIC STROKE [None]
  - MULTI-ORGAN FAILURE [None]
  - PNEUMONIA [None]
  - SUBCLAVIAN VEIN THROMBOSIS [None]
  - OVARIAN HYPERSTIMULATION SYNDROME [None]
  - INTRA-UTERINE DEATH [None]
